FAERS Safety Report 9319420 (Version 1)
Quarter: 2013Q2

REPORT INFORMATION
  Report Type: Spontaneous
  Country: US (occurrence: US)
  Receive Date: 20130530
  Receipt Date: 20130530
  Transmission Date: 20140414
  Serious: No
  Sender: FDA-Public Use
  Company Number: US-GLAXOSMITHKLINE-A0975210A

PATIENT
  Age: 55 Year
  Sex: Male
  Weight: 133.3 kg

DRUGS (4)
  1. FLOLAN [Suspect]
     Indication: PULMONARY HYPERTENSION
     Dosage: 15NGKM CONTINUOUS
     Route: 065
     Dates: start: 20120319
  2. TYVASO [Suspect]
     Indication: PRODUCT USED FOR UNKNOWN INDICATION
     Route: 055
  3. LASIX [Concomitant]
     Dosage: 20MG PER DAY
  4. COUMADIN [Concomitant]
     Dosage: 2.5MG PER DAY

REACTIONS (7)
  - Fatigue [Unknown]
  - Pain [Unknown]
  - Headache [Unknown]
  - Musculoskeletal discomfort [Recovering/Resolving]
  - Pyrexia [Unknown]
  - Arthralgia [Unknown]
  - Dizziness [Recovered/Resolved]
